FAERS Safety Report 24129965 (Version 2)
Quarter: 2024Q3

REPORT INFORMATION
  Report Type: Report from Study
  Country: BR (occurrence: BR)
  Receive Date: 20240724
  Receipt Date: 20240731
  Transmission Date: 20241016
  Serious: Yes (Hospitalization, Other)
  Sender: NOVARTIS
  Company Number: BR-002147023-NVSC2024BR150660

PATIENT
  Sex: Male

DRUGS (1)
  1. ENTRESTO [Suspect]
     Active Substance: SACUBITRIL\VALSARTAN
     Indication: Cardiac failure
     Dosage: 200 MG, BID
     Route: 048

REACTIONS (2)
  - COVID-19 [Unknown]
  - Dementia Alzheimer^s type [Not Recovered/Not Resolved]
